FAERS Safety Report 9102350 (Version 1)
Quarter: 2013Q1

REPORT INFORMATION
  Report Type: Spontaneous
  Country: FR (occurrence: FR)
  Receive Date: 20130219
  Receipt Date: 20130219
  Transmission Date: 20140127
  Serious: Yes (Hospitalization)
  Sender: FDA-Public Use
  Company Number: FR-JNJFOC-20130203559

PATIENT
  Age: 40 Year
  Sex: Male

DRUGS (3)
  1. HALDOL [Suspect]
     Indication: PRODUCT USED FOR UNKNOWN INDICATION
     Route: 050
     Dates: start: 20120519, end: 20120519
  2. TAVANIC [Suspect]
     Indication: PNEUMONIA
     Route: 065
     Dates: start: 20120515, end: 20120519
  3. MERONEM [Suspect]
     Indication: BACTERAEMIA
     Route: 065
     Dates: start: 20120519, end: 20120519

REACTIONS (1)
  - Urticaria [Recovered/Resolved]
